FAERS Safety Report 6858776-X (Version None)
Quarter: 2010Q3

REPORT INFORMATION
  Report Type: 
  Country: None (occurrence: None)
  Receive Date: 20100719
  Receipt Date: 20080213
  Transmission Date: 20110219
  Serious: Yes (Other)
  Sender: FDA-Public Use
  Company Number: US-PFIZER INC-2008014917

PATIENT
  Sex: Female
  Weight: 62.1 kg

DRUGS (6)
  1. CHANTIX [Suspect]
     Indication: SMOKING CESSATION THERAPY
     Dates: start: 20070801
  2. AMBIEN [Concomitant]
     Indication: SLEEP DISORDER
  3. PRAVACHOL [Concomitant]
     Indication: HYPERLIPIDAEMIA
     Dates: start: 20030101
  4. ZYRTEC [Concomitant]
     Indication: HYPERSENSITIVITY
     Dates: start: 20040101
  5. FLONASE [Concomitant]
     Dates: start: 20070101
  6. MICARDIS HCT [Concomitant]
     Indication: HYPERTENSION
     Dates: start: 20071101

REACTIONS (3)
  - ANXIETY [None]
  - DEPRESSION [None]
  - INTENTIONAL DRUG MISUSE [None]
